FAERS Safety Report 5074674-9 (Version None)
Quarter: 2006Q3

REPORT INFORMATION
  Report Type: 
  Country: None (occurrence: None)
  Receive Date: 20060803
  Receipt Date: 20060724
  Transmission Date: 20061208
  Serious: Yes (Other)
  Sender: FDA-Public Use
  Company Number: 2006092480

PATIENT
  Age: 60 Year
  Sex: Female
  Weight: 74.8435 kg

DRUGS (5)
  1. ZOLOFT [Suspect]
     Indication: DEPRESSION
     Dosage: 20 MG (20 MG, 1 IN 1 D)
     Dates: start: 19990101
  2. MONTELUKAST SODIUM [Concomitant]
  3. SEROQUEL [Concomitant]
  4. PREVACID [Concomitant]
  5. ALL OTHER THERAPEUTIC PRODUCTS [Concomitant]

REACTIONS (6)
  - ASTHENIA [None]
  - DIZZINESS [None]
  - FATIGUE [None]
  - PSYCHOMOTOR HYPERACTIVITY [None]
  - SCHIZOPHRENIA [None]
  - SOMNOLENCE [None]
